FAERS Safety Report 5248098-5 (Version None)
Quarter: 2007Q1

REPORT INFORMATION
  Report Type: 
  Country: None (occurrence: None)
  Receive Date: 20070227
  Receipt Date: 20070223
  Transmission Date: 20070707
  Serious: Yes (Other)
  Sender: FDA-Public Use
  Company Number: US-GLAXOSMITHKLINE-A0641023A

PATIENT
  Sex: Female

DRUGS (1)
  1. COREG [Suspect]
     Dosage: 6.125MG TWICE PER DAY
     Route: 065

REACTIONS (5)
  - CIRCULATORY COLLAPSE [None]
  - DRY EYE [None]
  - DYSPNOEA EXERTIONAL [None]
  - FATIGUE [None]
  - FORMICATION [None]
